FAERS Safety Report 12328533 (Version 1)
Quarter: 2016Q2

REPORT INFORMATION
  Report Type: Spontaneous
  Country: US (occurrence: US)
  Receive Date: 20160503
  Receipt Date: 20160503
  Transmission Date: 20160815
  Serious: No
  Sender: FDA-Public Use
  Company Number: US-BEH-2015049020

PATIENT
  Sex: Female
  Weight: 95 kg

DRUGS (20)
  1. LIDOCAINE/PRILOCAINE [Concomitant]
  2. MELOXICAM. [Concomitant]
     Active Substance: MELOXICAM
  3. MULTIVITAMINS [Concomitant]
     Active Substance: VITAMINS
  4. FLAXSEED [Concomitant]
     Active Substance: FLAX SEED
  5. METHYLPHENIDATE. [Concomitant]
     Active Substance: METHYLPHENIDATE
  6. NASAL SPRAY [Concomitant]
     Active Substance: UNSPECIFIED INGREDIENT
  7. ACETAMINOPHEN. [Concomitant]
     Active Substance: ACETAMINOPHEN
  8. SIMVASTATIN. [Concomitant]
     Active Substance: SIMVASTATIN
  9. HIZENTRA [Suspect]
     Active Substance: HUMAN IMMUNOGLOBULIN G
     Indication: IMMUNODEFICIENCY COMMON VARIABLE
     Route: 058
  10. LISINOPRIL. [Concomitant]
     Active Substance: LISINOPRIL
  11. XANAX [Concomitant]
     Active Substance: ALPRAZOLAM
  12. METFORMIN [Concomitant]
     Active Substance: METFORMIN HYDROCHLORIDE
  13. BUSPIRONE [Concomitant]
     Active Substance: BUSPIRONE HYDROCHLORIDE
  14. ASPIRIN. [Concomitant]
     Active Substance: ASPIRIN
  15. EPIPEN [Concomitant]
     Active Substance: EPINEPHRINE
  16. DIPHENHYDRAMINE. [Concomitant]
     Active Substance: DIPHENHYDRAMINE
  17. POTASSIUM CL ER [Concomitant]
     Active Substance: POTASSIUM CHLORIDE
  18. CHLORTHALIDONE. [Concomitant]
     Active Substance: CHLORTHALIDONE
  19. PROZAC [Concomitant]
     Active Substance: FLUOXETINE HYDROCHLORIDE
  20. CLARITIN [Concomitant]
     Active Substance: LORATADINE

REACTIONS (1)
  - Infusion site induration [Unknown]
